FAERS Safety Report 5219461-3 (Version None)
Quarter: 2007Q2

REPORT INFORMATION
  Report Type: 
  Country: None (occurrence: None)
  Receive Date: 20070124
  Receipt Date: 20070124
  Transmission Date: 20071010
  Serious: Yes (Other)
  Sender: FDA-Public Use
  Company Number: None

PATIENT
  Age: 76 Year
  Sex: Male
  Weight: 99.8 kg

DRUGS (13)
  1. LOSARTAN POTASSIUM [Suspect]
  2. NIFEDIPINE [Concomitant]
  3. LOSARTAN POTASSIUM [Concomitant]
  4. CIPROFLOXACIN HCL [Concomitant]
  5. HYDROXYZINE PAMOATE [Concomitant]
  6. GLYBURIDE [Concomitant]
  7. KETOROLAC TROMETHAMINE [Concomitant]
  8. LISINOPRIL [Concomitant]
  9. METHOCARBAMOL [Concomitant]
  10. SIMVASTATIN [Concomitant]
  11. DORZOLAMIDE HCL [Concomitant]
  12. MELOXICAM [Concomitant]
  13. RANITIDINE HCL [Concomitant]

REACTIONS (1)
  - ANGIOEDEMA [None]
